FAERS Safety Report 5530374-X (Version None)
Quarter: 2007Q4

REPORT INFORMATION
  Report Type: 
  Country: None (occurrence: None)
  Receive Date: 20071127
  Receipt Date: 20071116
  Transmission Date: 20080405
  Serious: Yes (Hospitalization)
  Sender: FDA-Public Use
  Company Number: FABR-12289

PATIENT
  Age: 17 Year
  Sex: Male
  Weight: 38 kg

DRUGS (6)
  1. FABRAZYME [Suspect]
     Indication: FABRY'S DISEASE
     Dosage: 35 MG Q2WKS IV
     Route: 042
     Dates: start: 20060420
  2. PRAZOSINE [Concomitant]
  3. METOPROLOL [Concomitant]
  4. AMLODIPINE [Concomitant]
  5. ENALAPRIL [Concomitant]
  6. LOVASTATIN [Concomitant]

REACTIONS (2)
  - CATHETER SITE INFECTION [None]
  - PERITONITIS [None]
